FAERS Safety Report 9468826 (Version 1)
Quarter: 2013Q3

REPORT INFORMATION
  Report Type: Spontaneous
  Country: AU (occurrence: None)
  Receive Date: 20130816
  Receipt Date: 20130816
  Transmission Date: 20140515
  Serious: Yes (Hospitalization, Other)
  Sender: FDA-Public Use
  Company Number: 2013AP007188

PATIENT
  Age: 76 Year
  Sex: Female

DRUGS (8)
  1. MIRTAZAPINE (MIRTAZAPINE) [Suspect]
     Indication: PRODUCT USED FOR UNKNOWN INDICATION
  2. OLANZAPINE (OLANZAPINE) [Concomitant]
  3. MEMANTINE (MEMANTINE) [Concomitant]
  4. DESVENLAFAXINE (DESVENLAFAXINE) [Concomitant]
  5. SOTALOL [Concomitant]
  6. DIGOXIN (DIGOXIN) [Concomitant]
  7. METHOTREXATE (METHOTREXATE) [Concomitant]
  8. PREDNISOLONE (PREDNISOLONE) [Concomitant]

REACTIONS (1)
  - Dyslipidaemia [None]
